FAERS Safety Report 22922066 (Version 2)
Quarter: 2023Q4

REPORT INFORMATION
  Report Type: Report from Study
  Country: JP (occurrence: JP)
  Receive Date: 20230908
  Receipt Date: 20231006
  Transmission Date: 20240110
  Serious: Yes (Death, Life-Threatening)
  Sender: FDA-Public Use
  Company Number: JP-Merck Healthcare KGaA-9389552

PATIENT
  Age: 79 Year
  Sex: Male
  Weight: 64 kg

DRUGS (1)
  1. BAVENCIO [Suspect]
     Active Substance: AVELUMAB
     Indication: Malignant neoplasm of renal pelvis
     Route: 041
     Dates: start: 20230127, end: 20230210

REACTIONS (1)
  - Myasthenia gravis [Fatal]

NARRATIVE: CASE EVENT DATE: 20230224
